FAERS Safety Report 5788831-7 (Version None)
Quarter: 2008Q2

REPORT INFORMATION
  Report Type: 
  Country: None (occurrence: None)
  Receive Date: 20080624
  Receipt Date: 20080613
  Transmission Date: 20081010
  Serious: Yes (Other)
  Sender: FDA-Public Use
  Company Number: CHNY2008AU02288

PATIENT
  Sex: Male

DRUGS (2)
  1. NICOTINELL TT (NCH) (NICOTINE) TRANS-THERAPEUTIC-SYSTEM [Suspect]
     Indication: SMOKING CESSATION THERAPY
     Dosage: 1 DF, ONCE/SINGLE, TRANSDERMAL
     Route: 062
     Dates: start: 20080522, end: 20080522
  2. NICABATE (NICOTINE) [Suspect]
     Indication: SMOKING CESSATION THERAPY
     Dosage: 4 PATCHES

REACTIONS (5)
  - CONTUSION [None]
  - GENERALISED ERYTHEMA [None]
  - INFLAMMATION [None]
  - PAIN OF SKIN [None]
  - PRURITUS GENERALISED [None]
